FAERS Safety Report 8538478-4 (Version None)
Quarter: 2012Q3

REPORT INFORMATION
  Report Type: 
  Country: None (occurrence: None)
  Receive Date: 20120718
  Receipt Date: 20120718
  Transmission Date: 20120928
  Serious: Yes (Life-Threatening, Hospitalization)
  Sender: FDA-Public Use
  Company Number: None

PATIENT
  Age: 47 Year
  Sex: Female
  Weight: 79.3795 kg

DRUGS (1)
  1. BUPROPION HYDROCHLORIDE (WELLBUTRIN XL) [Suspect]
     Indication: DEPRESSION
     Dosage: 1 TAB DAILY
     Dates: start: 20120516, end: 20120518

REACTIONS (5)
  - PNEUMONIA [None]
  - FEELING ABNORMAL [None]
  - SCREAMING [None]
  - NONSPECIFIC REACTION [None]
  - PAIN IN EXTREMITY [None]
